FAERS Safety Report 8738953 (Version 3)
Quarter: 2013Q2

REPORT INFORMATION
  Report Type: Spontaneous
  Country: US (occurrence: US)
  Receive Date: 20120823
  Receipt Date: 20130402
  Transmission Date: 20140414
  Serious: Yes (Death, Hospitalization)
  Sender: FDA-Public Use
  Company Number: US-B.I. PHARMACEUTICALS,INC./RIDGEFIELD-2012-BP-20135BP

PATIENT
  Age: 72 Year
  Sex: Female
  Weight: 75.3 kg

DRUGS (16)
  1. PRADAXA [Suspect]
     Indication: ATRIAL FIBRILLATION
     Dosage: 300 MG
     Route: 048
     Dates: start: 20110206, end: 20110210
  2. DOPAMINE [Concomitant]
  3. FLAGYL [Concomitant]
     Dosage: 1500 MG
     Route: 042
  4. ZOSYN [Concomitant]
     Dosage: 10.125 MG
     Route: 042
  5. MULTAQ [Concomitant]
     Dosage: 800 MG
  6. PREDNISONE [Concomitant]
     Dosage: 20 MG
     Route: 048
  7. MIRALAX [Concomitant]
     Dosage: 17 G
     Route: 048
  8. CARDIZEM [Concomitant]
     Dosage: 180 MG
     Route: 048
  9. LIBRIUM [Concomitant]
     Dosage: 200 MG
     Route: 048
  10. SLIDING SCALE [Concomitant]
  11. TENORMIN [Concomitant]
     Dosage: 800 MG
  12. FOLIC ACID [Concomitant]
  13. VITAMIN D [Concomitant]
  14. DIGOXIN [Concomitant]
     Dosage: 0.25 G
     Route: 048
  15. HUMIBID [Concomitant]
  16. VANCOMYCIN [Concomitant]
     Dosage: 1 G
     Route: 042

REACTIONS (10)
  - Cardio-respiratory arrest [Fatal]
  - Gastrointestinal haemorrhage [Fatal]
  - Haemorrhagic stroke [Fatal]
  - Retroperitoneal haemorrhage [Fatal]
  - Renal failure acute [Unknown]
  - Coagulopathy [Unknown]
  - Shock haemorrhagic [Unknown]
  - Anaemia [Unknown]
  - Haemorrhage [Unknown]
  - Rectal haemorrhage [Unknown]
